FAERS Safety Report 5943797-1 (Version None)
Quarter: 2008Q4

REPORT INFORMATION
  Report Type: 
  Country: None (occurrence: None)
  Receive Date: 20081106
  Receipt Date: 20081104
  Transmission Date: 20090506
  Serious: Yes (Hospitalization, Other)
  Sender: FDA-Public Use
  Company Number: US-BRISTOL-MYERS SQUIBB COMPANY-14394886

PATIENT
  Age: 64 Year
  Sex: Male
  Weight: 72 kg

DRUGS (3)
  1. CETUXIMAB [Suspect]
     Indication: HEAD AND NECK CANCER
     Dosage: THERAPY STARTED ON 10-JUN-2008.
     Route: 042
     Dates: start: 20080716, end: 20080716
  2. CISPLATIN [Suspect]
     Indication: HEAD AND NECK CANCER
     Dosage: THERAPY STARTED ON 10-JUN-2008; GIVEN ON DAY 1 + 22.
     Route: 042
     Dates: start: 20080716, end: 20080716
  3. RADIATION THERAPY [Suspect]
     Indication: HEAD AND NECK CANCER
     Dates: start: 20080610

REACTIONS (6)
  - DYSPHAGIA [None]
  - HAEMOGLOBIN DECREASED [None]
  - OROPHARYNGEAL PAIN [None]
  - PHARYNGEAL HAEMORRHAGE [None]
  - SOFT TISSUE NECROSIS [None]
  - TRISMUS [None]
